FAERS Safety Report 17523536 (Version 1)
Quarter: 2020Q1

REPORT INFORMATION
  Report Type: Spontaneous
  Country: US (occurrence: US)
  Receive Date: 20200311
  Receipt Date: 20200311
  Transmission Date: 20200409
  Serious: No
  Sender: FDA-Public Use
  Company Number: US-ELI_LILLY_AND_COMPANY-US202002006180

PATIENT
  Sex: Female

DRUGS (3)
  1. ADMELOG [Concomitant]
     Active Substance: INSULIN LISPRO
     Indication: TYPE 2 DIABETES MELLITUS
     Dosage: 17 U, TID
  2. BASAGLAR [Suspect]
     Active Substance: INSULIN GLARGINE
     Indication: TYPE 2 DIABETES MELLITUS
     Dosage: 27 U, TID
     Route: 058
     Dates: start: 20191223
  3. BASAGLAR [Suspect]
     Active Substance: INSULIN GLARGINE
     Dosage: 27 U, TID
     Route: 058

REACTIONS (2)
  - Injection site injury [Recovered/Resolved]
  - Wrong technique in product usage process [Recovered/Resolved]
